FAERS Safety Report 21586820 (Version 1)
Quarter: 2022Q4

REPORT INFORMATION
  Report Type: Spontaneous
  Country: US (occurrence: US)
  Receive Date: 20221113
  Receipt Date: 20221113
  Transmission Date: 20230113
  Serious: No
  Sender: FDA-Public Use
  Company Number: US-ELI_LILLY_AND_COMPANY-US202211004739

PATIENT
  Age: 56 Year
  Sex: Female

DRUGS (1)
  1. EMGALITY [Suspect]
     Active Substance: GALCANEZUMAB-GNLM
     Indication: Migraine
     Dosage: UNK UNK, UNKNOWN
     Route: 065
     Dates: start: 202203

REACTIONS (3)
  - Injection site pruritus [Unknown]
  - Injection site swelling [Unknown]
  - Injection site induration [Unknown]

NARRATIVE: CASE EVENT DATE: 20220901
